FAERS Safety Report 21330416 (Version 2)
Quarter: 2022Q4

REPORT INFORMATION
  Report Type: Spontaneous
  Country: BR (occurrence: BR)
  Receive Date: 20220913
  Receipt Date: 20221201
  Transmission Date: 20230113
  Serious: Yes (Other)
  Sender: FDA-Public Use
  Company Number: BR-BoehringerIngelheim-2022-BI-191154

PATIENT
  Age: 81 Year
  Sex: Female
  Weight: 65 kg

DRUGS (7)
  1. STRIVERDI RESPIMAT [Suspect]
     Active Substance: OLODATEROL HYDROCHLORIDE
     Indication: Chronic obstructive pulmonary disease
     Dosage: 2 PUFFS DAILY, 1 PUFF IN THE MORNING AND 1 PUFF AT NIGHT
     Route: 055
     Dates: start: 2015
  2. STRIVERDI RESPIMAT [Suspect]
     Active Substance: OLODATEROL HYDROCHLORIDE
     Route: 055
     Dates: start: 202209
  3. BECLOMETHASONE DIPROPIONATE\FORMOTEROL FUMARATE\GLYCOPYRROLATE [Suspect]
     Active Substance: BECLOMETHASONE DIPROPIONATE\FORMOTEROL FUMARATE\GLYCOPYRROLATE
     Indication: Product used for unknown indication
     Dosage: ONCE IN THE MORNING, INHALED
     Route: 055
  4. MESTINON [Suspect]
     Active Substance: PYRIDOSTIGMINE BROMIDE
     Indication: Muscular weakness
     Dosage: 1 TABLET IN THE MORNING, 1 TABLET IN THE AFTERNOON AND 1 TABLET AT NIGHT, ORALLY
     Route: 048
  5. MESTINON [Suspect]
     Active Substance: PYRIDOSTIGMINE BROMIDE
     Dosage: 1 TABLET IN THE MORNING AND 1 TABLET AT NIGHT
     Route: 048
  6. MESTINON [Suspect]
     Active Substance: PYRIDOSTIGMINE BROMIDE
     Dosage: 1 TABLET IN THE MORNING, 1 TABLET IN THE AFTERNOON AND 1 TABLET AT NIGHT, ORALLY
     Route: 048
  7. CANNABIDIOL [Concomitant]
     Active Substance: CANNABIDIOL
     Indication: Product used for unknown indication
     Dosage: APPROXIMATELY 40MG (SHE DOESN^T REMEMBER THE EXACT MG), INGESTING 4 DROPS AT NIGHT (ORALLY)
     Route: 048

REACTIONS (13)
  - Asphyxia [Recovered/Resolved]
  - Hypoacusis [Not Recovered/Not Resolved]
  - Cough [Recovered/Resolved]
  - Wrong technique in product usage process [Recovered/Resolved]
  - Disturbance in attention [Unknown]
  - Oral discomfort [Unknown]
  - Plicated tongue [Unknown]
  - Muscular weakness [Unknown]
  - Muscular weakness [Unknown]
  - Fatigue [Recovered/Resolved]
  - Abdominal pain [Unknown]
  - Diarrhoea [Not Recovered/Not Resolved]
  - Anal incontinence [Unknown]

NARRATIVE: CASE EVENT DATE: 20220501
